FAERS Safety Report 9553817 (Version 1)
Quarter: 2013Q3

REPORT INFORMATION
  Report Type: Spontaneous
  Country: US (occurrence: None)
  Receive Date: 20130924
  Receipt Date: 20130924
  Transmission Date: 20140515
  Serious: No
  Sender: FDA-Public Use
  Company Number: None

PATIENT
  Age: 80 Year
  Sex: Male
  Weight: 79.38 kg

DRUGS (6)
  1. PRAVASTATIN [Suspect]
     Indication: BLOOD CHOLESTEROL
     Route: 048
     Dates: end: 20130602
  2. PLAVIX [Concomitant]
  3. ATENOLOL [Concomitant]
  4. ASPRIN [Concomitant]
  5. CALCIUM [Concomitant]
  6. FISH OIL [Concomitant]

REACTIONS (2)
  - Muscular weakness [None]
  - Myalgia [None]
